FAERS Safety Report 18792742 (Version 1)
Quarter: 2021Q1

REPORT INFORMATION
  Report Type: Spontaneous
  Country: TH (occurrence: TH)
  Receive Date: 20210127
  Receipt Date: 20210127
  Transmission Date: 20210419
  Serious: Yes (Other)
  Sender: FDA-Public Use
  Company Number: TH-CELLTRION INC.-2020TH031534

PATIENT

DRUGS (5)
  1. TRUXIMA [Suspect]
     Active Substance: RITUXIMAB-ABBS
     Indication: THROMBOCYTOPENIA
  2. AZATHIOPRINE. [Concomitant]
     Active Substance: AZATHIOPRINE
  3. TRUXIMA [Suspect]
     Active Substance: RITUXIMAB-ABBS
     Indication: SYSTEMIC LUPUS ERYTHEMATOSUS
     Dosage: 1G X 2 INFUSIONS PER 2 WEEKS
     Dates: start: 201804, end: 201906
  4. CICLOSPORIN A [Concomitant]
     Active Substance: CYCLOSPORINE
  5. PREDNISOLONE. [Suspect]
     Active Substance: PREDNISOLONE
     Indication: SYSTEMIC LUPUS ERYTHEMATOSUS
     Dosage: 15 MG/DAY

REACTIONS (4)
  - Off label use [Unknown]
  - Drug effective for unapproved indication [Unknown]
  - Escherichia urinary tract infection [Unknown]
  - Sepsis [Unknown]
